FAERS Safety Report 8788540 (Version 1)
Quarter: 2012Q4

REPORT INFORMATION
  Report Type: 
  Country: US (occurrence: US)
  Receive Date: 20120914
  Receipt Date: 20120914
  Transmission Date: 20130627
  Serious: No
  Sender: FDA-Public Use
  Company Number: US-VERTEX PHARMACEUTICAL INC.-AE-2012-011455

PATIENT
  Age: 48 None
  Sex: Female

DRUGS (4)
  1. INCIVEK [Suspect]
     Indication: HEPATITIS C
     Dosage: 750 mg, tid
     Route: 048
     Dates: start: 20120612
  2. RIBAVIRIN [Concomitant]
     Indication: HEPATITIS C
     Dosage: UNK, bid
     Route: 048
     Dates: start: 20120612
  3. PEGASYS [Concomitant]
     Indication: HEPATITIS C
     Route: 058
     Dates: start: 20120626
  4. HIV MEDS [Concomitant]
     Indication: HIV INFECTION

REACTIONS (8)
  - Drug dose omission [Recovered/Resolved]
  - Off label use [Unknown]
  - Aphagia [None]
  - Anorectal discomfort [Not Recovered/Not Resolved]
  - Anal pruritus [Not Recovered/Not Resolved]
  - Diarrhoea [Not Recovered/Not Resolved]
  - Nausea [Unknown]
  - Vomiting [Unknown]
